FAERS Safety Report 9158075 (Version 1)
Quarter: 2013Q1

REPORT INFORMATION
  Report Type: Spontaneous
  Country: US (occurrence: US)
  Receive Date: 20130312
  Receipt Date: 20130312
  Transmission Date: 20140127
  Serious: Yes (Hospitalization)
  Sender: FDA-Public Use
  Company Number: US-GLAXOSMITHKLINE-A0794197A

PATIENT
  Sex: Female

DRUGS (1)
  1. AVANDIA [Suspect]
     Indication: DIABETES MELLITUS
     Route: 048
     Dates: start: 200207, end: 200802

REACTIONS (4)
  - Cardiac failure congestive [Not Recovered/Not Resolved]
  - Multiple fractures [Unknown]
  - Heart injury [Unknown]
  - General physical health deterioration [Unknown]
